FAERS Safety Report 8615559-8 (Version None)
Quarter: 2012Q3

REPORT INFORMATION
  Report Type: 
  Country: None (occurrence: None)
  Receive Date: 20120809
  Receipt Date: 20120725
  Transmission Date: 20120928
  Serious: Yes (Death)
  Sender: FDA-Public Use
  Company Number: 2012US000015

PATIENT
  Age: 69 Year
  Sex: Male
  Weight: 91.8 kg

DRUGS (5)
  1. FERROUS SULFATE TAB [Suspect]
     Indication: ANAEMIA
     Dosage: 350 MG, QD, PO
     Route: 048
  2. ALPRAZOLAM [Suspect]
     Indication: ANXIETY
     Dosage: PO
     Route: 048
  3. ENTEREG [Suspect]
     Indication: COLECTOMY
     Dosage: 12 MG, BID, PO
     Route: 048
     Dates: start: 20120711, end: 20120717
  4. LISINOPRIL [Suspect]
     Indication: HYPERTENSION
     Dosage: 10 MG, QD, PO
     Route: 048
  5. MULTI-VITAMIN [Suspect]
     Indication: MEDICAL DIET

REACTIONS (3)
  - SHOCK [None]
  - INTESTINAL ISCHAEMIA [None]
  - DIARRHOEA [None]
